FAERS Safety Report 12011319 (Version 1)
Quarter: 2016Q1

REPORT INFORMATION
  Report Type: Spontaneous
  Country: GB (occurrence: GB)
  Receive Date: 20160205
  Receipt Date: 20160205
  Transmission Date: 20160526
  Serious: Yes (Other)
  Sender: FDA-Public Use
  Company Number: GB-TEVA-629860ACC

PATIENT
  Age: 27 Year
  Sex: Female
  Weight: 74 kg

DRUGS (19)
  1. BUSCOPAN [Concomitant]
     Active Substance: BUTYLSCOPOLAMINE BROMIDE
     Dosage: 4 DOSAGE FORMS DAILY;
     Dates: start: 20150916
  2. GAVISCON ADVANCE [Concomitant]
     Active Substance: POTASSIUM BICARBONATE\SODIUM ALGINATE
     Dosage: 5ML - 10ML FOUR TIMES A DAY
     Dates: start: 20150916
  3. SENNA [Concomitant]
     Active Substance: SENNA LEAF\SENNOSIDES\SENNOSIDES A AND B
     Indication: CONSTIPATION
     Dosage: 2 DOSAGE FORMS DAILY; AT NIGHT
     Dates: start: 20150916
  4. SULFASALAZINE. [Concomitant]
     Active Substance: SULFASALAZINE
     Dosage: 4 DOSAGE FORMS DAILY; AS DIRECTED
     Dates: start: 20150916
  5. FEXOFENADINE [Concomitant]
     Active Substance: FEXOFENADINE\FEXOFENADINE HYDROCHLORIDE
     Dosage: 1 DOSAGE FORMS DAILY;
     Dates: start: 20150916
  6. MERCAPTOPURINE. [Concomitant]
     Active Substance: MERCAPTOPURINE
     Dosage: 1 DOSAGE FORMS DAILY; AS DIRECTED BY SPECIALIST
     Dates: start: 20151007
  7. METOCLOPRAMIDE. [Concomitant]
     Active Substance: METOCLOPRAMIDE
     Dosage: 3 DOSAGE FORMS DAILY;
     Dates: start: 20150916
  8. ONDANSETRON [Concomitant]
     Active Substance: ONDANSETRON
     Dosage: 3 DOSAGE FORMS DAILY; AS DIRECTED
     Dates: start: 20150916
  9. PARACETAMOL [Concomitant]
     Active Substance: ACETAMINOPHEN
     Dosage: TAKE ONE OR TWO UP TO FOUR TIMES DAILY
     Dates: start: 20150916
  10. ESOMEPRAZOLE [Concomitant]
     Active Substance: ESOMEPRAZOLE
     Dosage: 1 DOSAGE FORMS DAILY;
     Dates: start: 20150916
  11. RANITIDINE [Concomitant]
     Active Substance: RANITIDINE\RANITIDINE HYDROCHLORIDE
     Dosage: FOR STOMACH AS DIRECTED
     Dates: start: 20150916
  12. ERYTHROMYCIN. [Suspect]
     Active Substance: ERYTHROMYCIN
     Dates: start: 20160118
  13. GABAPENTIN. [Concomitant]
     Active Substance: GABAPENTIN
     Dosage: 1 THREE TIMES A DAY INCREASED TO 3 CAPSULES THREE TIMES A DAY OVER SEVERAL WEEKS AS DIRECTED
     Dates: start: 20151117
  14. NASOFAN AQUEOUS [Concomitant]
     Dosage: 1 DOSAGE FORMS DAILY; EACH NOSTRIL
     Dates: start: 20150916
  15. BETAHISTINE [Concomitant]
     Active Substance: BETAHISTINE
     Dosage: 3 DOSAGE FORMS DAILY;
     Dates: start: 20150916
  16. CALCICHEW D3 [Concomitant]
     Active Substance: CALCIUM\CHOLECALCIFEROL
     Dosage: 2 DOSAGE FORMS DAILY;
     Dates: start: 20151117
  17. TRAMADOL. [Concomitant]
     Active Substance: TRAMADOL
     Dosage: 1-2 FOUR TIMES A DAY AS REQUIRED
     Dates: start: 20150916
  18. ADCAL [Concomitant]
     Dosage: 2 DOSAGE FORMS DAILY;
     Dates: start: 20150916
  19. BUDESONIDE. [Concomitant]
     Active Substance: BUDESONIDE
     Dosage: USE AS DIRECTED BY SPECIALIST
     Dates: start: 20150916

REACTIONS (2)
  - Vomiting [Recovering/Resolving]
  - Abdominal pain [Recovering/Resolving]

NARRATIVE: CASE EVENT DATE: 20160118
